FAERS Safety Report 4777829-3 (Version None)
Quarter: 2005Q3

REPORT INFORMATION
  Report Type: 
  Country: None (occurrence: None)
  Receive Date: 20050915
  Receipt Date: 20050829
  Transmission Date: 20060218
  Serious: Yes (Death, Hospitalization)
  Sender: FDA-Public Use
  Company Number: FR_050506493

PATIENT
  Age: 66 Year
  Sex: Male
  Weight: 70 kg

DRUGS (8)
  1. GEMZAR [Suspect]
     Indication: SQUAMOUS CELL CARCINOMA
     Dosage: 1250 MG/M2/2 OTHER
     Route: 050
     Dates: start: 20050311, end: 20050401
  2. CISPLATIN [Concomitant]
  3. NEULASTA [Concomitant]
  4. NOVATREX (METHOTREXATE /00113801/) [Concomitant]
  5. PREDNISONE [Concomitant]
  6. SPECIAFOLDINE (FOLIC ACID) [Concomitant]
  7. ACTONEL [Concomitant]
  8. DI-ANTALVIC [Concomitant]

REACTIONS (10)
  - ANOREXIA [None]
  - COUGH [None]
  - CREPITATIONS [None]
  - DYSPNOEA [None]
  - GENERAL PHYSICAL HEALTH DETERIORATION [None]
  - INTERSTITIAL LUNG DISEASE [None]
  - LUNG DISORDER [None]
  - PNEUMONITIS [None]
  - PYREXIA [None]
  - WRONG DRUG ADMINISTERED [None]
